FAERS Safety Report 12524787 (Version 2)
Quarter: 2016Q3

REPORT INFORMATION
  Report Type: Spontaneous
  Country: US (occurrence: US)
  Receive Date: 20160704
  Receipt Date: 20160707
  Transmission Date: 20161109
  Serious: Yes (Death, Hospitalization, Other)
  Sender: FDA-Public Use
  Company Number: US-PFIZER INC-2016324412

PATIENT
  Age: 53 Year
  Sex: Female

DRUGS (5)
  1. DEPO-MEDROL [Suspect]
     Active Substance: METHYLPREDNISOLONE ACETATE
     Indication: HYPERSENSITIVITY
     Dosage: 80 MG, SINGLE
     Dates: start: 20160615, end: 20160615
  2. BENTYL [Concomitant]
     Active Substance: DICYCLOMINE HYDROCHLORIDE
     Indication: DIARRHOEA
     Dosage: 20 MG (10MG CAPSULES, TWO CAPSULES), 2X/DAY AS NEEDED
  3. SOLU-MEDROL [Suspect]
     Active Substance: METHYLPREDNISOLONE SODIUM SUCCINATE
     Indication: HYPERSENSITIVITY
     Dosage: 80 MG (40MG/1ML INJECTION), SINGLE
     Dates: start: 20160615, end: 20160615
  4. FOLIC ACID. [Concomitant]
     Active Substance: FOLIC ACID
     Dosage: 1 MG, 1X/DAY
     Route: 048
  5. ACETAMINOPHEN. [Concomitant]
     Active Substance: ACETAMINOPHEN
     Indication: PAIN
     Dosage: 650 MG (325MG TABLETS, UP TO TWO TABLETS), EVERY 4 HRS AS NEEDED

REACTIONS (3)
  - Lower respiratory tract infection [Unknown]
  - Necrotising fasciitis [Fatal]
  - Haemolysis [Fatal]

NARRATIVE: CASE EVENT DATE: 20160617
